FAERS Safety Report 8048508-4 (Version None)
Quarter: 2011Q4

REPORT INFORMATION
  Report Type: 
  Country: None (occurrence: None)
  Receive Date: 20111209
  Receipt Date: 20111021
  Transmission Date: 20120403
  Serious: No
  Sender: FDA-Public Use
  Company Number: 2011SP050260

PATIENT
  Age: 61 Year
  Sex: Male

DRUGS (7)
  1. PEGASYS [Suspect]
  2. AMBIEN [Concomitant]
  3. LISINOPRIL [Concomitant]
  4. ATENOLOL [Concomitant]
  5. LUNESTA [Concomitant]
  6. VICTRELIS [Suspect]
     Indication: HEPATITIS C
     Dosage: 800 MG;TID; PO
     Route: 048
     Dates: start: 20110802
  7. RIBASPHERE [Suspect]
     Indication: HEPATITIS C

REACTIONS (3)
  - DISEASE RECURRENCE [None]
  - INSOMNIA [None]
  - CONFUSIONAL STATE [None]
